FAERS Safety Report 5430546-9 (Version None)
Quarter: 2007Q3

REPORT INFORMATION
  Report Type: 
  Country: None (occurrence: None)
  Receive Date: 20070830
  Receipt Date: 20070824
  Transmission Date: 20080115
  Serious: Yes (Other)
  Sender: FDA-Public Use
  Company Number: US-SP-2007-02286

PATIENT
  Age: 29 Year
  Sex: Female

DRUGS (3)
  1. TUBERSOL [Suspect]
     Indication: TUBERCULIN TEST
     Route: 023
     Dates: start: 20070619
  2. TUBERSOL [Suspect]
     Route: 023
     Dates: start: 20070619
  3. LEXAPRO [Concomitant]

REACTIONS (6)
  - INJECTION SITE ERYTHEMA [None]
  - INJECTION SITE PRURITUS [None]
  - INJECTION SITE REACTION [None]
  - INJECTION SITE URTICARIA [None]
  - SWOLLEN TONGUE [None]
  - THROAT TIGHTNESS [None]
